FAERS Safety Report 21763020 (Version 1)
Quarter: 2022Q4

REPORT INFORMATION
  Report Type: Spontaneous
  Country: CN (occurrence: CN)
  Receive Date: 20221221
  Receipt Date: 20221221
  Transmission Date: 20230112
  Serious: Yes (Hospitalization, Other)
  Sender: FDA-Public Use
  Company Number: CN-PFIZER INC-PV202200126502

PATIENT
  Age: 59 Year
  Sex: Male
  Weight: 69 kg

DRUGS (2)
  1. CYTARABINE [Suspect]
     Active Substance: CYTARABINE
     Indication: Neoplasm
     Dosage: 0.070 G, 1X/DAY
     Route: 037
     Dates: start: 20221123, end: 20221123
  2. RITUXIMAB [Concomitant]
     Active Substance: RITUXIMAB
     Indication: Neoplasm
     Dosage: 600 MG, 1X/DAY
     Route: 041
     Dates: start: 20221123, end: 20221123

REACTIONS (4)
  - Myelosuppression [Recovering/Resolving]
  - Chills [Recovering/Resolving]
  - Pyrexia [Recovering/Resolving]
  - Diarrhoea [Recovering/Resolving]

NARRATIVE: CASE EVENT DATE: 20221128
